FAERS Safety Report 4993622-0 (Version None)
Quarter: 2006Q2

REPORT INFORMATION
  Report Type: 
  Country: None (occurrence: None)
  Receive Date: 20060505
  Receipt Date: 20060427
  Transmission Date: 20061013
  Serious: Yes (Other)
  Sender: FDA-Public Use
  Company Number: US-JNJFOC-20030904432

PATIENT
  Sex: Male
  Weight: 102.06 kg

DRUGS (23)
  1. RISPERDAL [Suspect]
     Dosage: BEDTIME
     Route: 048
  2. RISPERDAL [Suspect]
     Route: 048
  3. RISPERDAL [Suspect]
     Route: 048
  4. RISPERDAL [Suspect]
     Dosage: 1.5 MG IN THE MORNING; 3 MG AT BEDTIME
     Route: 048
  5. RISPERDAL [Suspect]
     Indication: BIPOLAR DISORDER
     Dosage: BEDTIME
     Route: 048
  6. RISPERDAL [Suspect]
     Indication: SCHIZOAFFECTIVE DISORDER
     Dosage: BEDTIME FOR FOUR WEEKS
     Route: 048
  7. RISPERIDONE [Suspect]
     Indication: BIPOLAR DISORDER
  8. RISPERIDONE [Suspect]
     Indication: SCHIZOAFFECTIVE DISORDER
     Dosage: BEDTIME
  9. HALOPERIDOL [Concomitant]
  10. LITHIUM [Concomitant]
  11. WELLBUTRIN [Concomitant]
  12. PROZAC [Concomitant]
  13. MELLARIL [Concomitant]
  14. NORVASC [Concomitant]
  15. MONOPRIL [Concomitant]
  16. TRAZODONE HCL [Concomitant]
  17. ZYPREXA [Concomitant]
  18. ATIVAN [Concomitant]
  19. LOTREL [Concomitant]
  20. LOTREL [Concomitant]
  21. PRINIVIL [Concomitant]
  22. STRATTERA [Concomitant]
  23. GEODON [Concomitant]

REACTIONS (12)
  - DELUSION [None]
  - DIARRHOEA [None]
  - GLUCOSE URINE PRESENT [None]
  - HAEMORRHOIDAL HAEMORRHAGE [None]
  - HALLUCINATION, AUDITORY [None]
  - HALLUCINATION, VISUAL [None]
  - HOMICIDAL IDEATION [None]
  - INTESTINAL POLYP [None]
  - RECTAL HAEMORRHAGE [None]
  - SCIATICA [None]
  - SEDATION [None]
  - TARDIVE DYSKINESIA [None]
